FAERS Safety Report 4299492-0 (Version None)
Quarter: 2004Q1

REPORT INFORMATION
  Report Type: 
  Country: None (occurrence: None)
  Receive Date: 20040217
  Receipt Date: 20040129
  Transmission Date: 20041129
  Serious: Yes (Other)
  Sender: FDA-Public Use
  Company Number: 200326692BWH

PATIENT
  Age: 54 Year
  Sex: Male

DRUGS (1)
  1. AVELOX [Suspect]
     Indication: CHRONIC SINUSITIS
     Dosage: 400 MG, QD, ORAL
     Route: 048
     Dates: start: 20020205

REACTIONS (1)
  - HEPATIC ENZYME INCREASED [None]
